FAERS Safety Report 10953952 (Version 1)
Quarter: 2015Q1

REPORT INFORMATION
  Report Type: Spontaneous
  Country: US (occurrence: None)
  Receive Date: 20150226
  Receipt Date: 20150226
  Transmission Date: 20150721
  Serious: No
  Sender: FDA-Public Use
  Company Number: TAP2004Q1004

PATIENT
  Age: 42 Year
  Sex: Male
  Weight: 77.11 kg

DRUGS (1)
  1. PREVACID [Suspect]
     Active Substance: LANSOPRAZOLE
     Indication: GASTRIC ULCER
     Route: 048
     Dates: start: 20040707, end: 20040717

REACTIONS (3)
  - Erythema multiforme [None]
  - Pruritus [None]
  - Urticaria [None]

NARRATIVE: CASE EVENT DATE: 20040717
